FAERS Safety Report 23390505 (Version 2)
Quarter: 2024Q3

REPORT INFORMATION
  Report Type: Report from Study
  Country: JP (occurrence: JP)
  Receive Date: 20240111
  Receipt Date: 20240820
  Transmission Date: 20241016
  Serious: Yes (Hospitalization)
  Sender: ABBVIE
  Company Number: JP-ABBVIE-22K-087-4338185-00

PATIENT
  Age: 60 Year
  Sex: Female
  Weight: 50 kg

DRUGS (5)
  1. RINVOQ [Suspect]
     Active Substance: UPADACITINIB
     Indication: Rheumatoid arthritis
     Dosage: 7.5 MILLIGRAM
     Route: 048
     Dates: start: 20210201, end: 20210214
  2. PREDNISOLONE [Concomitant]
     Active Substance: PREDNISOLONE
     Indication: Rheumatoid arthritis
     Dosage: 4 MILLIGRAM
  3. MINODRONIC ACID [Concomitant]
     Active Substance: MINODRONIC ACID
     Indication: Product used for unknown indication
     Dosage: 50 MG/MONTH? HYDRATE
     Route: 048
  4. RABEPRAZOLE SODIUM [Concomitant]
     Active Substance: RABEPRAZOLE SODIUM
     Indication: Product used for unknown indication
     Dosage: 10 MILLIGRAM
     Route: 048
  5. SULFAMETHOXAZOLE AND TRIMETHOPRIM [Concomitant]
     Active Substance: SULFAMETHOXAZOLE\TRIMETHOPRIM
     Indication: Product used for unknown indication
     Dosage: 0.5 TABLET /THREE TIMES A WEEK
     Route: 048

REACTIONS (2)
  - Colon cancer [Recovered/Resolved]
  - Therapeutic product effect incomplete [Unknown]

NARRATIVE: CASE EVENT DATE: 20230930
